FAERS Safety Report 10248562 (Version 1)
Quarter: 2014Q2

REPORT INFORMATION
  Report Type: Spontaneous
  Country: GB (occurrence: None)
  Receive Date: 20140618
  Receipt Date: 20140618
  Transmission Date: 20141212
  Serious: Yes (Other)
  Sender: FDA-Public Use
  Company Number: 2388282

PATIENT
  Age: 48 Year
  Sex: Female

DRUGS (2)
  1. CARBOPLATIN [Suspect]
     Indication: OVARIAN CANCER
     Dosage: AUC 6 ( 3 WEEK)
  2. PACLITAXEL [Concomitant]

REACTIONS (3)
  - Papilloedema [None]
  - Neutropenia [None]
  - Thrombocytopenia [None]
